FAERS Safety Report 8791443 (Version 1)
Quarter: 2012Q4

REPORT INFORMATION
  Report Type: Spontaneous
  Country: US (occurrence: None)
  Receive Date: 20120912
  Receipt Date: 20120912
  Transmission Date: 20130627
  Serious: Yes (Death)
  Sender: FDA-Public Use
  Company Number: 2012-476

PATIENT
  Age: 28 Year
  Sex: Female

DRUGS (16)
  1. FAZACLO [Suspect]
     Route: 048
     Dates: start: 20090904, end: 20120827
  2. FOLIC ACID [Concomitant]
  3. GIANVI (DROSPIRENONE, ETHINYLESTRADIOL) [Concomitant]
  4. LOVAZA (OMEGA-3-ACID ETHYYL ESTER) [Concomitant]
  5. ESCITALOPRAM (ESCITALOPRAM OXALATE) [Concomitant]
  6. LEVOCETIRIZINE (LEVOCETIRIZINE DIHYDROCHLORIDE) [Concomitant]
  7. CETIRIZINE HYDROCHLORIDE [Concomitant]
  8. ACETYLCYSTEINE [Concomitant]
  9. LEVOTHYROXINE (LEVOTHYROXINE SODIUM) [Concomitant]
  10. FAMOTIDINE [Concomitant]
  11. NAMENDA (MEMANTINE HYDROCHLORIDE) [Concomitant]
  12. FLUTICASONE (FLUTICASONE PROPIONATE) [Concomitant]
  13. BUPROPION HCL ER (BUPROPION HYDROCHLORIDE) [Concomitant]
  14. ASPIRIN (ACETYLSALICYLIC ACID) [Concomitant]
  15. CALCIUM + VITAMIN D (CALCIUM, COLECALCIFEROL) [Concomitant]
  16. CIPROFLOXACIN (CIPROFLOCACIN HYDROCHLORIDE) [Concomitant]

REACTIONS (1)
  - Aspiration [None]
